FAERS Safety Report 4440788-7 (Version None)
Quarter: 2004Q3

REPORT INFORMATION
  Report Type: 
  Country: None (occurrence: None)
  Receive Date: 20040824
  Receipt Date: 20040810
  Transmission Date: 20050211
  Serious: Yes (Hospitalization, Other)
  Sender: FDA-Public Use
  Company Number: HQWYE353517AUG04

PATIENT
  Age: 7 Year

DRUGS (1)
  1. REFACTO [Suspect]
     Dosage: 750 IU 3X PER 1 WK

REACTIONS (4)
  - BLOOD LACTATE DEHYDROGENASE INCREASED [None]
  - BRONCHITIS [None]
  - CATHETER PLACEMENT [None]
  - CATHETER REMOVAL [None]
